FAERS Safety Report 23817745 (Version 1)
Quarter: 2024Q2

REPORT INFORMATION
  Report Type: Spontaneous
  Country: US (occurrence: US)
  Receive Date: 20240506
  Receipt Date: 20240506
  Transmission Date: 20240716
  Serious: Yes (Other)
  Sender: FDA-Public Use
  Company Number: US-NOVOPROD-1212688

PATIENT
  Age: 67 Year
  Sex: Female

DRUGS (1)
  1. OZEMPIC [Suspect]
     Active Substance: SEMAGLUTIDE
     Indication: Cardiac failure
     Dosage: UNK
     Route: 058

REACTIONS (6)
  - Cardiac failure [Unknown]
  - Ill-defined disorder [Unknown]
  - Dyspnoea [Unknown]
  - Arthralgia [Unknown]
  - Weight fluctuation [Unknown]
  - Off label use [Unknown]
